FAERS Safety Report 7961700-X (Version None)
Quarter: 2011Q4

REPORT INFORMATION
  Report Type: 
  Country: None (occurrence: None)
  Receive Date: 20111207
  Receipt Date: 20111129
  Transmission Date: 20120403
  Serious: Yes (Hospitalization, Other)
  Sender: FDA-Public Use
  Company Number: PHHY2011TR104521

PATIENT
  Age: 69 Year
  Sex: Female

DRUGS (1)
  1. ENOXAPARIN [Suspect]
     Dosage: 0.4 CC TWICE DAILY

REACTIONS (10)
  - RESPIRATORY DISTRESS [None]
  - CYANOSIS [None]
  - PULMONARY EMBOLISM [None]
  - DYSPNOEA [None]
  - HEPARIN-INDUCED THROMBOCYTOPENIA [None]
  - VENTRICULAR HYPOKINESIA [None]
  - BLOOD PRESSURE DECREASED [None]
  - DILATATION VENTRICULAR [None]
  - HAEMODYNAMIC INSTABILITY [None]
  - SINUS TACHYCARDIA [None]
